FAERS Safety Report 15650095 (Version 1)
Quarter: 2018Q4

REPORT INFORMATION
  Report Type: Spontaneous
  Country: GB (occurrence: GB)
  Receive Date: 20181123
  Receipt Date: 20181123
  Transmission Date: 20190205
  Serious: Yes (Hospitalization)
  Sender: FDA-Public Use
  Company Number: GB-TEVA-2018-GB-977643

PATIENT
  Age: 73 Year
  Sex: Female

DRUGS (12)
  1. LANSOPRAZOLE. [Concomitant]
     Active Substance: LANSOPRAZOLE
     Route: 065
  2. TRAMADOL. [Concomitant]
     Active Substance: TRAMADOL
     Route: 065
  3. ROSUVASTATIN. [Concomitant]
     Active Substance: ROSUVASTATIN
     Route: 065
  4. AMITRIPTYLINE [Concomitant]
     Active Substance: AMITRIPTYLINE
     Route: 065
  5. CLOPIDOGREL [Suspect]
     Active Substance: CLOPIDOGREL BISULFATE
     Indication: MYOCARDIAL INFARCTION
     Dosage: 75 MILLIGRAM DAILY;
     Route: 048
     Dates: start: 20180620
  6. ACETYLSALICYLIC ACID [Suspect]
     Active Substance: ASPIRIN
     Indication: MYOCARDIAL INFARCTION
     Dosage: 1 DOSAGE FORMS DAILY;
     Route: 048
     Dates: start: 20171214
  7. BISOPROLOL [Concomitant]
     Active Substance: BISOPROLOL
     Route: 065
  8. ADCAL-D3 [Concomitant]
     Active Substance: CALCIUM CARBONATE\CHOLECALCIFEROL
  9. ALENDRONIC ACID [Concomitant]
     Active Substance: ALENDRONIC ACID
     Route: 065
  10. CHEMYDUR XL [Concomitant]
     Route: 065
  11. CANDESARTAN. [Concomitant]
     Active Substance: CANDESARTAN
     Route: 065
  12. MEBEVERINE [Concomitant]
     Active Substance: MEBEVERINE
     Route: 065

REACTIONS (2)
  - Rectal haemorrhage [Recovered/Resolved with Sequelae]
  - Irritable bowel syndrome [Unknown]

NARRATIVE: CASE EVENT DATE: 20181021
